FAERS Safety Report 8276080-2 (Version None)
Quarter: 2012Q2

REPORT INFORMATION
  Report Type: 
  Country: None (occurrence: None)
  Receive Date: 20120412
  Receipt Date: 20120402
  Transmission Date: 20120825
  Serious: Yes (Other)
  Sender: FDA-Public Use
  Company Number: CA-JNJFOC-20120401199

PATIENT
  Sex: Male
  Weight: 95 kg

DRUGS (4)
  1. REMICADE [Suspect]
     Route: 042
     Dates: start: 20090101
  2. VITAMIN D [Concomitant]
     Route: 065
  3. REMICADE [Suspect]
     Indication: CROHN'S DISEASE
     Dosage: 19TH INFUSION
     Route: 042
     Dates: start: 20120220
  4. PROBIOTICS [Concomitant]
     Route: 065

REACTIONS (3)
  - DEFAECATION URGENCY [None]
  - DIARRHOEA [None]
  - INFECTION PARASITIC [None]
